FAERS Safety Report 20612687 (Version 1)
Quarter: 2022Q1

REPORT INFORMATION
  Report Type: Spontaneous
  Country: US (occurrence: US)
  Receive Date: 20220318
  Receipt Date: 20220318
  Transmission Date: 20220424
  Serious: Yes (Other)
  Sender: FDA-Public Use
  Company Number: US-UPSHER-SMITH LABORATORIES, LLC-2022USL00119

PATIENT
  Sex: Female
  Weight: 72.562 kg

DRUGS (5)
  1. PREVALITE [Suspect]
     Active Substance: CHOLESTYRAMINE
     Indication: Diarrhoea
     Dosage: 1 DOSAGE FORM, 2X/DAY
     Dates: start: 2018
  2. PREVALITE [Suspect]
     Active Substance: CHOLESTYRAMINE
     Dosage: 3 PACKETS PER DAY
  3. PREVALITE [Suspect]
     Active Substance: CHOLESTYRAMINE
     Dosage: 1 DOSAGE FORM, 2X/DAY (1 EVERY MORNING AND MOST TIMES ANOTHER WITH DINNER)
     Dates: start: 2018
  4. INSULIN NOS [Concomitant]
     Active Substance: INSULIN NOS
  5. 21 UNSPECIFIED MEDICATIONS [Concomitant]

REACTIONS (4)
  - Pancreatic carcinoma [Not Recovered/Not Resolved]
  - Diarrhoea [Unknown]
  - Abdominal pain upper [Unknown]
  - Abdominal distension [Unknown]
